FAERS Safety Report 6770398-8 (Version None)
Quarter: 2010Q2

REPORT INFORMATION
  Report Type: 
  Country: None (occurrence: None)
  Receive Date: 20100615
  Receipt Date: 20100603
  Transmission Date: 20101027
  Serious: Yes (Hospitalization)
  Sender: FDA-Public Use
  Company Number: US-PFIZER INC-2010070608

PATIENT

DRUGS (1)
  1. SUTENT [Suspect]
     Dosage: 12.5 MG, DAILY
     Dates: start: 20100525

REACTIONS (1)
  - CHEST DISCOMFORT [None]
